FAERS Safety Report 8924308 (Version 1)
Quarter: 2012Q4

REPORT INFORMATION
  Report Type: 
  Country: FR (occurrence: FR)
  Receive Date: 20121126
  Receipt Date: 20121126
  Transmission Date: 20130627
  Serious: Yes (Hospitalization)
  Sender: FDA-Public Use
  Company Number: FR-GLAXOSMITHKLINE-B0844940A

PATIENT
  Age: 39 None
  Sex: Male

DRUGS (6)
  1. LAMICTAL [Suspect]
     Indication: PSYCHOTIC DISORDER
     Route: 048
     Dates: start: 201112
  2. ABILIFY [Concomitant]
     Indication: PSYCHOTIC DISORDER
     Dosage: 30MG per day
     Route: 048
  3. TRANXENE [Concomitant]
     Indication: AGITATION
     Dosage: 50MG per day
     Route: 048
  4. IMOVANE [Concomitant]
     Indication: INSOMNIA
     Route: 048
  5. SULFARLEM [Concomitant]
     Indication: APTYALISM
     Route: 048
  6. AERIUS [Concomitant]
     Indication: HYPERSENSITIVITY
     Route: 048

REACTIONS (4)
  - Leukopenia [Not Recovered/Not Resolved]
  - Thrombocytopenia [Not Recovered/Not Resolved]
  - Anaemia [Unknown]
  - Incorrect dose administered [Unknown]
